FAERS Safety Report 23332820 (Version 1)
Quarter: 2023Q4

REPORT INFORMATION
  Report Type: Spontaneous
  Country: US (occurrence: US)
  Receive Date: 20231222
  Receipt Date: 20231222
  Transmission Date: 20240110
  Serious: No
  Sender: FDA-Public Use
  Company Number: US-CTI BIOPHARMA-2023US04091

PATIENT

DRUGS (6)
  1. VONJO [Suspect]
     Active Substance: PACRITINIB
     Indication: Acute myeloid leukaemia
     Dosage: 200 MG, BID
     Route: 048
     Dates: start: 202303
  2. ALPRAZOLAM [Concomitant]
     Active Substance: ALPRAZOLAM
  3. JADENU [Concomitant]
     Active Substance: DEFERASIROX
  4. METAMUCIL [Concomitant]
     Active Substance: PLANTAGO SEED
  5. OXYCODONE [Concomitant]
     Active Substance: OXYCODONE
  6. VITAMIN D3 [Concomitant]
     Active Substance: CHOLECALCIFEROL

REACTIONS (3)
  - Transfusion [Not Recovered/Not Resolved]
  - Off label use [Unknown]
  - Drug ineffective [Not Recovered/Not Resolved]
